FAERS Safety Report 9642764 (Version 2)
Quarter: 2014Q1

REPORT INFORMATION
  Report Type: Spontaneous
  Country: US (occurrence: US)
  Receive Date: 20131024
  Receipt Date: 20140217
  Transmission Date: 20141002
  Serious: No
  Sender: FDA-Public Use
  Company Number: US-JNJFOC-20131011905

PATIENT
  Age: 64 Year
  Sex: Male

DRUGS (6)
  1. STELARA [Suspect]
     Indication: PSORIASIS
     Route: 058
     Dates: start: 20121003
  2. PLAVIX [Concomitant]
     Indication: DYSLIPIDAEMIA
     Route: 065
  3. LIPITOR [Concomitant]
     Indication: DYSLIPIDAEMIA
     Route: 065
  4. GLIPIZIDE [Concomitant]
     Indication: TYPE 2 DIABETES MELLITUS
     Route: 065
  5. FUROSEMIDE [Concomitant]
     Indication: HYPERTENSION
     Route: 065
  6. PREVACID [Concomitant]
     Indication: GASTROOESOPHAGEAL REFLUX DISEASE
     Route: 065

REACTIONS (1)
  - Pneumonia [Recovered/Resolved]
